FAERS Safety Report 18951280 (Version 2)
Quarter: 2021Q1

REPORT INFORMATION
  Report Type: Spontaneous
  Country: US (occurrence: US)
  Receive Date: 20210228
  Receipt Date: 20210316
  Transmission Date: 20210420
  Serious: Yes (Other)
  Sender: FDA-Public Use
  Company Number: US-AUROBINDO-AUR-APL-2021-007516

PATIENT
  Age: 86 Year
  Sex: Female
  Weight: 68.9 kg

DRUGS (1)
  1. GUAIFENESINANDDEXTROMETHORPHAN1200/60MGEXTENDEDRELEASETABLET OTC [Suspect]
     Active Substance: DEXTROMETHORPHAN\GUAIFENESIN
     Indication: SINUSITIS
     Dosage: UNK
     Route: 065
     Dates: start: 20210215, end: 20210215

REACTIONS (2)
  - Choking [Unknown]
  - Product use complaint [Unknown]
